FAERS Safety Report 8810652 (Version 1)
Quarter: 2012Q4

REPORT INFORMATION
  Report Type: Spontaneous
  Country: US (occurrence: None)
  Receive Date: 20120920
  Receipt Date: 20120920
  Transmission Date: 20130627
  Serious: Yes (Other)
  Sender: FDA-Public Use
  Company Number: 20120555

PATIENT
  Sex: Male

DRUGS (1)
  1. DEXAMETHASONE SODIUM PHOSPHATE [Suspect]
     Dosage: Unknown injection NOS
     Dates: start: 20110726, end: 20110726

REACTIONS (3)
  - Injection site reaction [None]
  - Skin lesion [None]
  - Impaired healing [None]
